FAERS Safety Report 6061003-7 (Version None)
Quarter: 2009Q1

REPORT INFORMATION
  Report Type: 
  Country: None (occurrence: None)
  Receive Date: 20090202
  Receipt Date: 20090122
  Transmission Date: 20090719
  Serious: Yes (Other)
  Sender: FDA-Public Use
  Company Number: US-BIOGENIDEC-2008BI017273

PATIENT
  Age: 30 Year
  Sex: Female

DRUGS (4)
  1. AVONEX [Suspect]
     Indication: MULTIPLE SCLEROSIS
     Route: 030
     Dates: start: 20070523, end: 20070615
  2. AVONEX [Suspect]
     Route: 030
     Dates: start: 20070615, end: 20070706
  3. AVONEX [Suspect]
     Route: 030
     Dates: start: 20070706, end: 20071012
  4. AVONEX [Suspect]
     Route: 030
     Dates: start: 20080627

REACTIONS (2)
  - PREMATURE LABOUR [None]
  - SHORTENED CERVIX [None]
